FAERS Safety Report 14341257 (Version 2)
Quarter: 2018Q3

REPORT INFORMATION
  Report Type: Report from Study
  Country: IT (occurrence: IT)
  Receive Date: 20180102
  Receipt Date: 20180920
  Transmission Date: 20181010
  Serious: No
  Sender: FDA-Public Use
  Company Number: IT-EMD SERONO-8207312

PATIENT
  Age: 37 Year
  Sex: Female
  Weight: 60 kg

DRUGS (4)
  1. GONAL?F [Suspect]
     Active Substance: FOLLITROPIN
     Indication: OVULATION INDUCTION
     Dosage: 225 (UNSPECIFIED UNITS)
     Route: 058
     Dates: start: 20171014, end: 20171023
  2. EUTIROX [Concomitant]
     Active Substance: LEVOTHYROXINE SODIUM
     Indication: HYPOTHYROIDISM
     Dosage: 125 (UNSPECIFIED UNITS)
     Route: 048
     Dates: start: 20150101
  3. INDOMETACINA                       /00003801/ [Concomitant]
     Active Substance: INDOMETHACIN
     Indication: UTERINE LEIOMYOMA
     Dosage: ANAL SUPPOSITORY
  4. GONAL?F [Suspect]
     Active Substance: FOLLITROPIN
     Indication: INFERTILITY FEMALE

REACTIONS (1)
  - Ovarian hyperstimulation syndrome [Recovered/Resolved]

NARRATIVE: CASE EVENT DATE: 20171107
